FAERS Safety Report 8806464 (Version 1)
Quarter: 2012Q4

REPORT INFORMATION
  Report Type: Spontaneous
  Country: US (occurrence: None)
  Receive Date: 20120919
  Receipt Date: 20120919
  Transmission Date: 20130627
  Serious: Yes (Other)
  Sender: FDA-Public Use
  Company Number: None

PATIENT
  Sex: Female
  Weight: 74.84 kg

DRUGS (1)
  1. SYNTHROID [Suspect]

REACTIONS (2)
  - Hepatic cirrhosis [None]
  - Alcohol abuse [None]
